FAERS Safety Report 14328088 (Version 2)
Quarter: 2018Q1

REPORT INFORMATION
  Report Type: Spontaneous
  Country: DE (occurrence: DE)
  Receive Date: 20171227
  Receipt Date: 20180323
  Transmission Date: 20180509
  Serious: Yes (Hospitalization, Disabling)
  Sender: FDA-Public Use
  Company Number: DE-JNJFOC-20171231866

PATIENT
  Age: 7 Decade
  Sex: Female

DRUGS (1)
  1. SIMPONI [Suspect]
     Active Substance: GOLIMUMAB
     Indication: POLYARTHRITIS
     Route: 058
     Dates: start: 2012, end: 20170815

REACTIONS (3)
  - Product use in unapproved indication [Unknown]
  - Off label use [Unknown]
  - Amyotrophic lateral sclerosis [Not Recovered/Not Resolved]

NARRATIVE: CASE EVENT DATE: 2012
